FAERS Safety Report 19158075 (Version 1)
Quarter: 2021Q2

REPORT INFORMATION
  Report Type: Spontaneous
  Country: LV (occurrence: LV)
  Receive Date: 20210420
  Receipt Date: 20210420
  Transmission Date: 20210717
  Serious: Yes (Other)
  Sender: FDA-Public Use
  Company Number: LV-ROCHE-2808178

PATIENT
  Age: 33 Year
  Sex: Female
  Weight: 87 kg

DRUGS (1)
  1. SATRALIZUMAB. [Suspect]
     Active Substance: SATRALIZUMAB
     Indication: PRODUCT USED FOR UNKNOWN INDICATION
     Dosage: WITH LOADING DOSE 120 MG SUBCUTANEOUS INJECTIONS EVERY 2 WEEKS (FIRST DOSE AT WEEK 0, 2ND DOSE AT WE
     Route: 058
     Dates: start: 20201008

REACTIONS (3)
  - Musculoskeletal stiffness [Not Recovered/Not Resolved]
  - Interstitial lung disease [Unknown]
  - Arthralgia [Not Recovered/Not Resolved]

NARRATIVE: CASE EVENT DATE: 20210310
